FAERS Safety Report 8825166 (Version 3)
Quarter: 2012Q4

REPORT INFORMATION
  Report Type: 
  Country: US (occurrence: US)
  Receive Date: 20121004
  Receipt Date: 20121207
  Transmission Date: 20130627
  Serious: Yes (Hospitalization)
  Sender: FDA-Public Use
  Company Number: US-GLAXOSMITHKLINE-A0995449A

PATIENT
  Age: 69 Year
  Sex: Female

DRUGS (7)
  1. ADVAIR [Suspect]
     Indication: CHRONIC OBSTRUCTIVE PULMONARY DISEASE
     Dosage: 1PUFF Twice per day
     Route: 055
     Dates: start: 2004
  2. ALBUTEROL SOLUTION [Concomitant]
  3. MUCINEX [Concomitant]
  4. PROAIR HFA [Concomitant]
     Route: 055
  5. VITAMIN D [Concomitant]
  6. BUPROPION [Concomitant]
  7. PREDNISONE [Concomitant]

REACTIONS (6)
  - Myocardial infarction [Recovered/Resolved]
  - Drug ineffective [Recovered/Resolved]
  - Heart rate increased [Recovered/Resolved]
  - Palpitations [Recovered/Resolved]
  - Dyspnoea [Recovered/Resolved]
  - Product quality issue [Unknown]
